FAERS Safety Report 25539996 (Version 3)
Quarter: 2025Q3

REPORT INFORMATION
  Report Type: Spontaneous
  Country: CH (occurrence: CH)
  Receive Date: 20250710
  Receipt Date: 20250902
  Transmission Date: 20251020
  Serious: Yes (Hospitalization, Other)
  Sender: SANOFI AVENTIS
  Company Number: CH-BIOVITRUM-2025-CH-009401

PATIENT
  Age: 14 Year
  Sex: Male
  Weight: 66.2 kg

DRUGS (3)
  1. EFANESOCTOCOG ALFA [Suspect]
     Active Substance: EFANESOCTOCOG ALFA
     Indication: Factor VIII deficiency
     Dosage: 50 IU/KG, QW
     Route: 065
     Dates: start: 20241124, end: 20250620
  2. PENICILLIN V [Suspect]
     Active Substance: PENICILLIN V
     Indication: Product used for unknown indication
  3. PENICILLIN V [Suspect]
     Active Substance: PENICILLIN V

REACTIONS (7)
  - Muscle haemorrhage [Recovered/Resolved]
  - Haemarthrosis [Not Recovered/Not Resolved]
  - Seizure [Recovered/Resolved]
  - Anti factor VIII antibody positive [Not Recovered/Not Resolved]
  - Constipation [Recovered/Resolved]
  - Joint effusion [Unknown]
  - Synovitis [Not Recovered/Not Resolved]

NARRATIVE: CASE EVENT DATE: 20250101
